FAERS Safety Report 5735361-4 (Version None)
Quarter: 2008Q2

REPORT INFORMATION
  Report Type: 
  Country: None (occurrence: None)
  Receive Date: 20080508
  Receipt Date: 20080508
  Transmission Date: 20081010
  Serious: Yes (Disabling)
  Sender: FDA-Public Use
  Company Number: None

PATIENT
  Age: 12 Year
  Sex: Male
  Weight: 56.6996 kg

DRUGS (2)
  1. CREST PRO HEALTH PROCTOR + GAMBLE [Suspect]
     Indication: DENTAL PLAQUE
     Dosage: 20 ML  2 TIMES DAY  DENTAL  (DURATION: OVER 1 YEAR)
     Route: 004
  2. CREST PRO HEALTH PROCTOR + GAMBLE [Suspect]
     Indication: PROPHYLAXIS
     Dosage: 20 ML  2 TIMES DAY  DENTAL  (DURATION: OVER 1 YEAR)
     Route: 004

REACTIONS (3)
  - PHARMACEUTICAL PRODUCT COMPLAINT [None]
  - TOOTH DISCOLOURATION [None]
  - TOOTH DISORDER [None]
